FAERS Safety Report 13950114 (Version 1)
Quarter: 2017Q3

REPORT INFORMATION
  Report Type: Report from Study
  Country: CA (occurrence: CA)
  Receive Date: 20170908
  Receipt Date: 20170908
  Transmission Date: 20171128
  Serious: Yes (Hospitalization)
  Sender: FDA-Public Use
  Company Number: CA-VERTEX PHARMACEUTICALS-2017-004290

PATIENT
  Age: 18 Year
  Sex: Female

DRUGS (1)
  1. ORKAMBI [Suspect]
     Active Substance: IVACAFTOR\LUMACAFTOR
     Indication: CYSTIC FIBROSIS
     Dosage: 200/ 125MG, BID
     Route: 048
     Dates: end: 20170803

REACTIONS (7)
  - Haemoptysis [Unknown]
  - Hyperactive pharyngeal reflex [Unknown]
  - Cough [Not Recovered/Not Resolved]
  - Chest discomfort [Unknown]
  - Rash pruritic [Unknown]
  - Fatigue [Recovering/Resolving]
  - Circulatory collapse [Unknown]

NARRATIVE: CASE EVENT DATE: 2017
